FAERS Safety Report 5465447-3 (Version None)
Quarter: 2007Q3

REPORT INFORMATION
  Report Type: 
  Country: None (occurrence: None)
  Receive Date: 20070920
  Receipt Date: 20070920
  Transmission Date: 20080115
  Serious: No
  Sender: FDA-Public Use
  Company Number: None

PATIENT
  Age: 50 Year
  Sex: Female
  Weight: 111.2 kg

DRUGS (1)
  1. MAGNEVIST [Suspect]
     Indication: NUCLEAR MAGNETIC RESONANCE IMAGING
     Dosage: 44.5 ML SINGLE DOSE IV
     Route: 042
     Dates: start: 20070905, end: 20070905

REACTIONS (7)
  - ABNORMAL SENSATION IN EYE [None]
  - CHEST DISCOMFORT [None]
  - EYELID OEDEMA [None]
  - HEADACHE [None]
  - HEART RATE IRREGULAR [None]
  - SENSITIVITY OF TEETH [None]
  - TENSION HEADACHE [None]
